FAERS Safety Report 8879574 (Version 1)
Quarter: 2012Q4

REPORT INFORMATION
  Report Type: 
  Country: IT (occurrence: IT)
  Receive Date: 20121031
  Receipt Date: 20121031
  Transmission Date: 20130627
  Serious: Yes (Other)
  Sender: FDA-Public Use
  Company Number: IT-ASTRAZENECA-2012SE80449

PATIENT
  Age: 30113 Day
  Sex: Female

DRUGS (6)
  1. LISINOPRIL [Suspect]
     Route: 048
     Dates: start: 20120601, end: 20120808
  2. MINIAS [Concomitant]
     Dosage: 2.5 mg/ml
     Route: 048
  3. ENTACT [Concomitant]
     Dosage: 20mg/ml
     Route: 048
  4. FUROSEMIDE [Concomitant]
  5. OXYCODONE [Concomitant]
  6. COLECALCIFEROL [Concomitant]

REACTIONS (1)
  - Renal failure chronic [Not Recovered/Not Resolved]
